FAERS Safety Report 4610905-4 (Version None)
Quarter: 2005Q2

REPORT INFORMATION
  Report Type: 
  Country: None (occurrence: None)
  Receive Date: 20050302
  Receipt Date: 20041214
  Transmission Date: 20051028
  Serious: Yes (Death)
  Sender: FDA-Public Use
  Company Number: BDI-006655

PATIENT
  Age: 30 Year
  Sex: Female

DRUGS (2)
  1. CHOLETEC [Suspect]
     Indication: LIVER FUNCTION TEST ABNORMAL
     Dosage: IV
     Route: 042
     Dates: start: 20030101, end: 20030101
  2. CHOLETEC [Suspect]
     Indication: SCAN
     Dosage: IV
     Route: 042
     Dates: start: 20030101, end: 20030101

REACTIONS (1)
  - DEATH [None]
